FAERS Safety Report 10217354 (Version 1)
Quarter: 2014Q2

REPORT INFORMATION
  Report Type: Report from Study
  Country: JP (occurrence: JP)
  Receive Date: 20140604
  Receipt Date: 20140604
  Transmission Date: 20141212
  Serious: Yes (Death)
  Sender: FDA-Public Use
  Company Number: JP-B.I. PHARMACEUTICALS,INC./RIDGEFIELD-2014-BI-24613NB

PATIENT
  Sex: Male
  Weight: 65 kg

DRUGS (5)
  1. PRAZAXA [Suspect]
     Indication: CEREBROVASCULAR ACCIDENT PROPHYLAXIS
     Dosage: 220 MG
     Route: 048
     Dates: start: 20120402, end: 20140124
  2. BAYASPIRIN [Concomitant]
     Indication: PROPHYLAXIS
     Dosage: 100 MG
     Route: 048
     Dates: start: 20120319
  3. ARTIST [Concomitant]
     Indication: PROPHYLAXIS
     Dosage: 2.5 MG
     Route: 048
  4. DIGOXIN [Concomitant]
     Indication: PROPHYLAXIS
     Dosage: 0.125 MG
     Route: 048
  5. PLAVIX [Concomitant]
     Dosage: 75 MG
     Route: 048
     Dates: start: 20120319, end: 20121106

REACTIONS (1)
  - Death [Fatal]
